FAERS Safety Report 8837771 (Version 1)
Quarter: 2012Q4

REPORT INFORMATION
  Report Type: 
  Country: US (occurrence: US)
  Receive Date: 20121012
  Receipt Date: 20121012
  Transmission Date: 20130627
  Serious: No
  Sender: FDA-Public Use
  Company Number: US-009507513-1209USA011761

PATIENT
  Sex: Female

DRUGS (4)
  1. REBETOL [Suspect]
     Indication: HEPATITIS C
     Dosage: UNK
     Route: 048
     Dates: start: 20120925
  2. REBETOL [Suspect]
     Dosage: UNK
     Route: 048
     Dates: start: 20090401, end: 20100101
  3. PEGASYS [Suspect]
     Indication: HEPATITIS C
     Dosage: UNK
     Dates: start: 20090401, end: 20120101
  4. PEGASYS [Suspect]
     Dosage: UNK
     Dates: start: 20120925

REACTIONS (2)
  - Dehydration [Unknown]
  - Anaemia [Unknown]
